FAERS Safety Report 9625639 (Version 1)
Quarter: 2013Q4

REPORT INFORMATION
  Report Type: Spontaneous
  Country: GB (occurrence: GB)
  Receive Date: 20131016
  Receipt Date: 20131016
  Transmission Date: 20140711
  Serious: Yes (Death, Life-Threatening, Hospitalization, Disabling)
  Sender: FDA-Public Use
  Company Number: GB-RANBAXY-2013R1-74064

PATIENT
  Age: 45 Year
  Sex: Female
  Weight: 100 kg

DRUGS (5)
  1. RISPERIDONE [Suspect]
     Indication: DIGEORGE^S SYNDROME
     Dosage: UNK
     Route: 048
     Dates: start: 200509
  2. CLOPIXOL [Suspect]
     Indication: PSYCHOTIC DISORDER
     Dosage: 1 DF, MONTHLY
     Route: 065
     Dates: start: 19981208
  3. CLOPIXOL [Suspect]
     Indication: PSYCHOTIC DISORDER
     Dosage: 400 MG, FORTNIGHT
     Route: 030
     Dates: start: 20050914, end: 20051031
  4. RISPERDAL [Suspect]
     Indication: PSYCHOTIC DISORDER
     Dosage: 37.5 MG, FORTNIGHT
     Route: 030
     Dates: start: 20050810, end: 20050908
  5. HALOPERIDOL [Concomitant]
     Indication: PRODUCT USED FOR UNKNOWN INDICATION
     Route: 048

REACTIONS (3)
  - Chest pain [Fatal]
  - Myocarditis [Fatal]
  - Schizophrenia [Not Recovered/Not Resolved]
